FAERS Safety Report 11734411 (Version 9)
Quarter: 2017Q1

REPORT INFORMATION
  Report Type: Spontaneous
  Country: US (occurrence: US)
  Receive Date: 20151113
  Receipt Date: 20170215
  Transmission Date: 20170428
  Serious: Yes (Congenital Anomaly, Other)
  Sender: FDA-Public Use
  Company Number: PHEH2015US023414

PATIENT
  Sex: Male

DRUGS (2)
  1. ZOFRAN [Suspect]
     Active Substance: ONDANSETRON HYDROCHLORIDE
     Indication: FOETAL EXPOSURE DURING PREGNANCY
     Dosage: UNK
     Route: 064
  2. ONDANSETRON HYDROCHLORIDE. [Suspect]
     Active Substance: ONDANSETRON HYDROCHLORIDE
     Indication: FOETAL EXPOSURE DURING PREGNANCY
     Dosage: MOTHER^S DOSE: 04 MG, TWICE DAILY (BID) AND 01 TABLET (DF), Q6H
     Route: 064

REACTIONS (42)
  - Patent ductus arteriosus [Unknown]
  - Atrial septal defect [Unknown]
  - Gastrooesophageal reflux disease [Unknown]
  - Dermatitis [Unknown]
  - Gastrointestinal inflammation [Unknown]
  - Ear infection [Unknown]
  - Eczema [Unknown]
  - Pyrexia [Unknown]
  - Cleft palate [Unknown]
  - Injury [Unknown]
  - Pain [Unknown]
  - Anhedonia [Unknown]
  - Poor weight gain neonatal [Unknown]
  - Developmental delay [Unknown]
  - Decreased appetite [Unknown]
  - Congenital anomaly [Unknown]
  - Speech disorder [Unknown]
  - Sleep apnoea syndrome [Unknown]
  - Phimosis [Unknown]
  - Foetal exposure during pregnancy [Unknown]
  - Emotional distress [Unknown]
  - Vomiting [Unknown]
  - Pharyngitis [Unknown]
  - Influenza [Unknown]
  - Seasonal allergy [Unknown]
  - Otitis media chronic [Unknown]
  - Abdominal pain [Unknown]
  - Respiratory disorder [Unknown]
  - Lactose intolerance [Unknown]
  - Upper respiratory tract infection [Unknown]
  - Tonsillitis [Unknown]
  - Cardiac murmur [Unknown]
  - Anxiety [Unknown]
  - Adenoiditis [Unknown]
  - Fall [Unknown]
  - Deafness [Unknown]
  - Deformity [Unknown]
  - Post procedural complication [Unknown]
  - Dermatitis contact [Unknown]
  - Feeding disorder [Unknown]
  - Head injury [Unknown]
  - Constipation [Unknown]
